FAERS Safety Report 23752145 (Version 1)
Quarter: 2024Q2

REPORT INFORMATION
  Report Type: Spontaneous
  Country: US (occurrence: US)
  Receive Date: 20240417
  Receipt Date: 20240417
  Transmission Date: 20240716
  Serious: Yes (Other)
  Sender: FDA-Public Use
  Company Number: ENDB23-03773

PATIENT
  Sex: Male

DRUGS (1)
  1. AVEED [Suspect]
     Active Substance: TESTOSTERONE UNDECANOATE
     Indication: Testicular failure
     Dosage: 3 MILLILITER, ONCE EVERY 10WK
     Route: 030
     Dates: start: 202209

REACTIONS (3)
  - Haemoglobin increased [Recovering/Resolving]
  - Haematocrit increased [Recovering/Resolving]
  - Red blood cell count increased [Recovering/Resolving]

NARRATIVE: CASE EVENT DATE: 20230101
